FAERS Safety Report 21311414 (Version 1)
Quarter: 2022Q3

REPORT INFORMATION
  Report Type: Spontaneous
  Country: US (occurrence: None)
  Receive Date: 20220908
  Receipt Date: 20220908
  Transmission Date: 20221026
  Serious: Yes (Hospitalization)
  Sender: FDA-Public Use
  Company Number: None

PATIENT
  Sex: Female

DRUGS (5)
  1. NOVOSEVEN RT [Suspect]
     Active Substance: COAGULATION FACTOR VIIA RECOMBINANT HUMAN
     Indication: Platelet disorder
     Dosage: FREQUENCY : EVERY 12 HOURS;?
     Route: 042
     Dates: start: 20220715
  2. AMINOCAPROIC ACID SOL [Concomitant]
  3. HEP LOCK SYR [Concomitant]
  4. SOD CHLOR FLSH [Concomitant]
  5. SOD CHL SRL FLSH SYR [Concomitant]

REACTIONS (2)
  - Infusion site haemorrhage [None]
  - Poor venous access [None]
